FAERS Safety Report 17141926 (Version 1)
Quarter: 2019Q4

REPORT INFORMATION
  Report Type: Spontaneous
  Country: CN (occurrence: CN)
  Receive Date: 20191211
  Receipt Date: 20191211
  Transmission Date: 20200122
  Serious: Yes (Hospitalization)
  Sender: FDA-Public Use
  Company Number: ALC2019CN002160

PATIENT
  Age: 56 Year
  Sex: Male
  Weight: 74 kg

DRUGS (1)
  1. FLUORESCITE [Suspect]
     Active Substance: FLUORESCEIN SODIUM
     Indication: FUNDOSCOPY
     Dosage: 5 ML, OT
     Route: 042
     Dates: start: 20191126, end: 20191126

REACTIONS (1)
  - Nausea [Recovered/Resolved]

NARRATIVE: CASE EVENT DATE: 20191126
